FAERS Safety Report 6460261-4 (Version None)
Quarter: 2009Q4

REPORT INFORMATION
  Report Type: 
  Country: None (occurrence: None)
  Receive Date: 20091130
  Receipt Date: 20091117
  Transmission Date: 20100525
  Serious: Yes (Hospitalization)
  Sender: FDA-Public Use
  Company Number: PHHY2009GB51061

PATIENT
  Age: 39 Year
  Sex: Female

DRUGS (3)
  1. TEGRETOL RETARD [Suspect]
     Dosage: 100 MG, QD
     Route: 048
  2. EPILIM EC [Suspect]
     Dosage: 0.8 G, TID
     Route: 048
  3. KEPPRA [Suspect]
     Dosage: UNK
     Route: 048
     Dates: start: 20090601

REACTIONS (5)
  - ATAXIA [None]
  - CONSTIPATION [None]
  - MALAISE [None]
  - PAIN [None]
  - URINARY TRACT INFECTION [None]
